FAERS Safety Report 23100951 (Version 2)
Quarter: 2023Q4

REPORT INFORMATION
  Report Type: Report from Study
  Country: PH (occurrence: None)
  Receive Date: 20231024
  Receipt Date: 20231108
  Transmission Date: 20240109
  Serious: Yes (Death, Other)
  Sender: FDA-Public Use
  Company Number: 2023A239270

PATIENT
  Age: 24982 Day
  Sex: Female
  Weight: 40 kg

DRUGS (4)
  1. TAGRISSO [Suspect]
     Active Substance: OSIMERTINIB
     Indication: Lung neoplasm malignant
     Route: 048
     Dates: start: 20230413, end: 20231012
  2. DOLCETAL [Concomitant]
     Indication: Pain
     Dosage: TO 4 TIMES A DAY
     Route: 048
     Dates: start: 202304, end: 202310
  3. ARCOXIA [Concomitant]
     Active Substance: ETORICOXIB
     Indication: Pain
     Dosage: ONLY WHEN PAIN IS MORE EXTREME THAN NORMAL
     Route: 048
     Dates: start: 202304, end: 202310
  4. OMEPRAZOLE [Concomitant]
     Active Substance: OMEPRAZOLE
     Indication: Bowel movement irregularity
     Dosage: ONLY IF HAVING CONSTIPATION
     Route: 048
     Dates: start: 202304, end: 202309

REACTIONS (3)
  - Oncologic complication [Fatal]
  - Metastases to central nervous system [Fatal]
  - Constipation [Recovering/Resolving]

NARRATIVE: CASE EVENT DATE: 20231016
